FAERS Safety Report 6680873-2 (Version None)
Quarter: 2010Q2

REPORT INFORMATION
  Report Type: 
  Country: None (occurrence: None)
  Receive Date: 20100414
  Receipt Date: 20100407
  Transmission Date: 20101027
  Serious: Yes (Other)
  Sender: FDA-Public Use
  Company Number: CH-BRISTOL-MYERS SQUIBB COMPANY-15027121

PATIENT
  Age: 39 Year
  Sex: Male

DRUGS (3)
  1. REYATAZ [Suspect]
     Indication: HIV INFECTION
     Dosage: STOPPED ON 23NOV2009 09DEC2009-29DEC2009 300 MG/DAY RESTARTED ON 07JAN2010
     Route: 048
     Dates: start: 20070101
  2. NORVIR [Suspect]
     Indication: HIV INFECTION
     Dosage: STOPPED ON 23NOV2009 09DEC2009-29DEC2009 100 MG/DAY RESTARTED ON 07JAN2010
     Route: 048
     Dates: start: 20070101
  3. TRUVADA [Suspect]
     Indication: HIV INFECTION
     Dosage: STOPPED ON 23NOV2009 09DEC2009-29DEC2009 1DF/DAY RESTARTED ON 07JAN2010
     Route: 048
     Dates: start: 20070101

REACTIONS (3)
  - HEPATITIS C [None]
  - JAUNDICE [None]
  - LIVER INJURY [None]
